FAERS Safety Report 9769954 (Version 1)
Quarter: 2013Q4

REPORT INFORMATION
  Report Type: Spontaneous
  Country: US (occurrence: US)
  Receive Date: 20131218
  Receipt Date: 20131218
  Transmission Date: 20140711
  Serious: No
  Sender: FDA-Public Use
  Company Number: US-VERTEX PHARMACEUTICALS INC-AE-2011-001000

PATIENT
  Age: 36 Year
  Sex: Female

DRUGS (9)
  1. INCIVEK [Suspect]
     Indication: HEPATITIS C
     Route: 048
     Dates: start: 20110804
  2. PEGINTERFERON ALFA-2A [Concomitant]
     Indication: HEPATITIS C
     Route: 058
     Dates: start: 20110804
  3. RIBAVIRIN [Concomitant]
     Indication: HEPATITIS C
     Dates: start: 20110804
  4. PRILOSEC [Concomitant]
     Route: 048
  5. FLEXERIL [Concomitant]
  6. STRATTERA [Concomitant]
     Route: 048
  7. MULTIVITAMINS [Concomitant]
     Route: 048
  8. NEUROTONIN [Concomitant]
     Route: 048
  9. PROVENTIL INHALER [Concomitant]

REACTIONS (4)
  - Dizziness [Not Recovered/Not Resolved]
  - Platelet count decreased [Not Recovered/Not Resolved]
  - Nausea [Not Recovered/Not Resolved]
  - Pruritus [Not Recovered/Not Resolved]
